FAERS Safety Report 16785538 (Version 1)
Quarter: 2019Q3

REPORT INFORMATION
  Report Type: Spontaneous
  Country: US (occurrence: US)
  Receive Date: 20190909
  Receipt Date: 20190909
  Transmission Date: 20191005
  Serious: No
  Sender: FDA-Public Use
  Company Number: US-PFIZER INC-2019383044

PATIENT
  Age: 75 Year
  Sex: Female
  Weight: 67.13 kg

DRUGS (2)
  1. ADVIL [Suspect]
     Active Substance: IBUPROFEN
     Indication: SCIATICA
  2. ADVIL [Suspect]
     Active Substance: IBUPROFEN
     Indication: BACK DISORDER
     Dosage: 400 MG, UNK (2X 200MG COATED TABLETS)
     Route: 048

REACTIONS (3)
  - Product use issue [Unknown]
  - Abdominal pain upper [Recovered/Resolved]
  - Flatulence [Recovered/Resolved]

NARRATIVE: CASE EVENT DATE: 20190902
